FAERS Safety Report 5184651-5 (Version None)
Quarter: 2006Q4

REPORT INFORMATION
  Report Type: 
  Country: None (occurrence: None)
  Receive Date: 20061220
  Receipt Date: 20060322
  Transmission Date: 20070319
  Serious: No
  Sender: FDA-Public Use
  Company Number: US-GLAXOSMITHKLINE-A0598571A

PATIENT
  Age: 61 Year
  Sex: Female

DRUGS (2)
  1. NICODERM CQ [Suspect]
     Dates: start: 20050501, end: 20050501
  2. COMMIT [Suspect]
     Dates: start: 20060322

REACTIONS (5)
  - FEELING ABNORMAL [None]
  - HYPERSENSITIVITY [None]
  - INSOMNIA [None]
  - INTENTIONAL DRUG MISUSE [None]
  - TONGUE ERUPTION [None]
